FAERS Safety Report 13040213 (Version 5)
Quarter: 2017Q3

REPORT INFORMATION
  Report Type: Report from Study
  Country: BE (occurrence: BE)
  Receive Date: 20161219
  Receipt Date: 20170912
  Transmission Date: 20171127
  Serious: Yes (Hospitalization)
  Sender: FDA-Public Use
  Company Number: BE-B.I. PHARMACEUTICALS,INC./RIDGEFIELD-2016-BI-084657

PATIENT
  Age: 36 Year
  Sex: Female
  Weight: 79.5 kg

DRUGS (4)
  1. BI 10773 [Suspect]
     Active Substance: EMPAGLIFLOZIN
     Indication: TYPE 1 DIABETES MELLITUS
     Route: 065
     Dates: start: 20160707, end: 20161202
  2. HUMALOG BOLUS [Concomitant]
     Indication: TYPE 1 DIABETES MELLITUS
     Dosage: UNIT DOSE AND DAILY DOSE: UNKNOWN
     Route: 058
     Dates: start: 2008
  3. HUMALOG [Concomitant]
     Active Substance: INSULIN LISPRO
     Dosage: TOTAL DAILY DOSE: 11.75 E
     Route: 058
     Dates: start: 2008
  4. HUMALOG [Concomitant]
     Active Substance: INSULIN LISPRO
     Indication: TYPE 1 DIABETES MELLITUS
     Route: 058
     Dates: start: 2008

REACTIONS (2)
  - Blood ketone body increased [Recovered/Resolved]
  - Blood ketone body increased [Recovered/Resolved]

NARRATIVE: CASE EVENT DATE: 20161202
